FAERS Safety Report 14166783 (Version 1)
Quarter: 2017Q4

REPORT INFORMATION
  Report Type: Spontaneous
  Country: US (occurrence: US)
  Receive Date: 20171106
  Receipt Date: 20171106
  Transmission Date: 20180321
  Serious: No
  Sender: FDA-Public Use
  Company Number: None

PATIENT
  Sex: Female

DRUGS (1)
  1. BACTRIM [Suspect]
     Active Substance: SULFAMETHOXAZOLE\TRIMETHOPRIM
     Indication: DRUG THERAPY

REACTIONS (3)
  - Product formulation issue [None]
  - Aggression [None]
  - Reaction to azo-dyes [None]

NARRATIVE: CASE EVENT DATE: 20171106
